FAERS Safety Report 7964841-6 (Version None)
Quarter: 2011Q4

REPORT INFORMATION
  Report Type: 
  Country: None (occurrence: None)
  Receive Date: 20111208
  Receipt Date: 20111206
  Transmission Date: 20120403
  Serious: Yes (Hospitalization, Other)
  Sender: FDA-Public Use
  Company Number: PHHY2011IN106498

PATIENT
  Sex: Male

DRUGS (1)
  1. TASIGNA [Suspect]
     Dosage: 400 MG, BID
     Route: 048
     Dates: start: 20111108, end: 20111203

REACTIONS (4)
  - HAEMOGLOBIN DECREASED [None]
  - TOTAL LUNG CAPACITY DECREASED [None]
  - PLATELET COUNT DECREASED [None]
  - EPISTAXIS [None]
